FAERS Safety Report 9954311 (Version 1)
Quarter: 2014Q1

REPORT INFORMATION
  Report Type: Spontaneous
  Country: US (occurrence: US)
  Receive Date: 20140304
  Receipt Date: 20140304
  Transmission Date: 20141002
  Serious: No
  Sender: FDA-Public Use
  Company Number: US-AMGEN-USASP2013087510

PATIENT
  Age: 37 Year
  Sex: Female
  Weight: 87.53 kg

DRUGS (7)
  1. ENBREL [Suspect]
     Indication: PRODUCT USED FOR UNKNOWN INDICATION
     Dosage: 50 MG, WEEKLY
     Route: 058
  2. MELOXICAM [Concomitant]
     Dosage: 15 MG, UNK
  3. LANTUS [Concomitant]
     Dosage: UNK
  4. APIDRA SOLOSTAR [Concomitant]
     Dosage: UNK
  5. PERCOCET                           /00446701/ [Concomitant]
     Dosage: 10-325 MG, UNK
  6. TYLENOL                            /00020001/ [Concomitant]
     Dosage: 500 MG, UNK
  7. BYETTA [Concomitant]
     Dosage: 10 MCG, UNK

REACTIONS (1)
  - Condition aggravated [Unknown]
